FAERS Safety Report 22713284 (Version 4)
Quarter: 2023Q4

REPORT INFORMATION
  Report Type: Spontaneous
  Country: US (occurrence: US)
  Receive Date: 20230717
  Receipt Date: 20231023
  Transmission Date: 20240110
  Serious: Yes (Other)
  Sender: FDA-Public Use
  Company Number: US-PFIZER INC-PV202300122081

PATIENT
  Age: 65 Year
  Sex: Female

DRUGS (2)
  1. IBRANCE [Suspect]
     Active Substance: PALBOCICLIB
     Dosage: 125 MG
  2. IBRANCE [Suspect]
     Active Substance: PALBOCICLIB
     Dosage: 100 MG

REACTIONS (10)
  - Suicidal ideation [Recovered/Resolved]
  - Fatigue [Unknown]
  - Sleep disorder [Recovered/Resolved]
  - Epistaxis [Recovered/Resolved]
  - Hepatic enzyme increased [Recovered/Resolved]
  - Chest discomfort [Recovered/Resolved]
  - Laboratory test abnormal [Unknown]
  - Taste disorder [Unknown]
  - Red blood cell count decreased [Unknown]
  - Irritability [Unknown]
